FAERS Safety Report 9643195 (Version 1)
Quarter: 2013Q4

REPORT INFORMATION
  Report Type: Spontaneous
  Country: US (occurrence: US)
  Receive Date: 20131024
  Receipt Date: 20131024
  Transmission Date: 20140711
  Serious: No
  Sender: FDA-Public Use
  Company Number: US-GLAXOSMITHKLINE-A1022672A

PATIENT
  Age: 21 Year
  Sex: Female

DRUGS (2)
  1. DUAC [Suspect]
     Indication: ACNE
     Route: 061
     Dates: start: 201304, end: 20130505
  2. MINOCYCLINE [Concomitant]

REACTIONS (3)
  - Skin discolouration [Unknown]
  - Dry skin [Unknown]
  - Drug ineffective [Unknown]
